FAERS Safety Report 8167257-5 (Version None)
Quarter: 2012Q1

REPORT INFORMATION
  Report Type: 
  Country: None (occurrence: None)
  Receive Date: 20120227
  Receipt Date: 20120222
  Transmission Date: 20120608
  Serious: Yes (Other)
  Sender: FDA-Public Use
  Company Number: US-PFIZER INC-2012047528

PATIENT
  Sex: Female
  Weight: 65 kg

DRUGS (27)
  1. INDERAL [Suspect]
     Dosage: UNK
  2. LISINOPRIL [Suspect]
     Indication: HYPERTENSION
     Dosage: 40 MG, DAILY
  3. MEDROXYPROGESTERONE [Suspect]
     Dosage: 2.5 MG, UNK
  4. COREG [Suspect]
     Dosage: 12.5 MG, 2X/DAY
  5. SPIRIVA [Suspect]
     Indication: EMPHYSEMA
  6. ESTRADIOL [Suspect]
     Dosage: 0.5 MG, UNK
  7. ADVAIR DISKUS 100/50 [Suspect]
     Indication: EMPHYSEMA
  8. ADVAIR DISKUS 100/50 [Suspect]
     Indication: ASTHMA
     Dosage: UNK
  9. ADVAIR DISKUS 100/50 [Suspect]
     Indication: BRONCHITIS
  10. SYMBICORT [Suspect]
     Indication: BRONCHITIS
  11. NORVASC [Suspect]
     Indication: HYPERTENSION
     Dosage: 10 MG, UNK
  12. ACETYLSALICYLIC ACID SRT [Suspect]
     Dosage: 81 MG, DAILY
  13. SEROQUEL [Suspect]
     Indication: POSTPARTUM DISORDER
     Dosage: 100 MG, DAILY
     Dates: start: 20060101
  14. CHANTIX [Suspect]
     Indication: SMOKING CESSATION THERAPY
     Dosage: 0.5 MG DAILY
     Route: 048
     Dates: start: 20120201
  15. CHANTIX [Suspect]
     Dosage: UNK
     Route: 048
  16. GEODON [Suspect]
     Dosage: UNK
  17. SPIRIVA [Suspect]
     Indication: BRONCHITIS
  18. TRAZODONE HCL [Suspect]
     Dosage: UNK
  19. COMBIVENT [Suspect]
     Indication: EMPHYSEMA
  20. SPIRIVA [Suspect]
     Indication: ASTHMA
     Dosage: UNK
  21. SEROQUEL [Suspect]
     Indication: BIPOLAR I DISORDER
  22. NIASPAN [Suspect]
     Indication: BLOOD CHOLESTEROL INCREASED
     Dosage: 500 MG, DAILY
  23. COMBIVENT [Suspect]
     Indication: BRONCHITIS
  24. DEPAKOTE [Suspect]
     Dosage: UNK
  25. SYMBICORT [Suspect]
     Indication: ASTHMA
     Dosage: UNK
  26. SYMBICORT [Suspect]
     Indication: EMPHYSEMA
  27. COMBIVENT [Suspect]
     Indication: ASTHMA
     Dosage: UNK

REACTIONS (14)
  - AGITATION [None]
  - GASTRIC DISORDER [None]
  - DRUG INEFFECTIVE [None]
  - NERVOUSNESS [None]
  - TREMOR [None]
  - DIZZINESS [None]
  - SOMNOLENCE [None]
  - NAUSEA [None]
  - STRESS [None]
  - DISORIENTATION [None]
  - IRRITABILITY [None]
  - MEMORY IMPAIRMENT [None]
  - MIGRAINE [None]
  - DRY MOUTH [None]
